FAERS Safety Report 8991977 (Version 1)
Quarter: 2012Q4

REPORT INFORMATION
  Report Type: 
  Country: JP (occurrence: JP)
  Receive Date: 20121231
  Receipt Date: 20121231
  Transmission Date: 20130627
  Serious: Yes (Other)
  Sender: FDA-Public Use
  Company Number: JP-ASTELLAS-2012JP012077

PATIENT
  Sex: Male

DRUGS (1)
  1. BETANIS [Suspect]
     Indication: HYPERTONIC BLADDER
     Dosage: 25 mg, UID/QD
     Route: 048
     Dates: start: 20121211, end: 20121213

REACTIONS (1)
  - Arrhythmia [Recovered/Resolved]
